FAERS Safety Report 7723800-9 (Version None)
Quarter: 2011Q3

REPORT INFORMATION
  Report Type: 
  Country: None (occurrence: None)
  Receive Date: 20110901
  Receipt Date: 20110825
  Transmission Date: 20111222
  Serious: Yes (Other)
  Sender: FDA-Public Use
  Company Number: PHHY2011US69629

PATIENT
  Sex: Female
  Weight: 9.26 kg

DRUGS (2)
  1. EXJADE [Suspect]
     Indication: SIDEROBLASTIC ANAEMIA
     Dosage: 125 MG, DAILY
     Route: 048
     Dates: start: 20110307, end: 20110425
  2. EXJADE [Suspect]

REACTIONS (1)
  - CLOSTRIDIAL INFECTION [None]
